FAERS Safety Report 14309702 (Version 3)
Quarter: 2018Q1

REPORT INFORMATION
  Report Type: Spontaneous
  Country: FR (occurrence: FR)
  Receive Date: 20171220
  Receipt Date: 20180205
  Transmission Date: 20180509
  Serious: Yes (Life-Threatening, Hospitalization, Other)
  Sender: FDA-Public Use
  Company Number: FR-JNJFOC-20171225469

PATIENT
  Age: 86 Year
  Sex: Female

DRUGS (4)
  1. XARELTO [Suspect]
     Active Substance: RIVAROXABAN
     Indication: ATRIAL FIBRILLATION
     Route: 048
     Dates: start: 201601
  2. ATENOLOL. [Concomitant]
     Active Substance: ATENOLOL
     Route: 065
  3. ATORVASTATIN [Concomitant]
     Active Substance: ATORVASTATIN
     Route: 065
  4. DAFALGAN [Concomitant]
     Active Substance: ACETAMINOPHEN
     Route: 065

REACTIONS (7)
  - Respiratory distress [Unknown]
  - Shock haemorrhagic [Unknown]
  - Mediastinal haemorrhage [Unknown]
  - Haemothorax [Unknown]
  - Haematoma [Unknown]
  - Pneumothorax [Unknown]
  - Bronchial artery aneurysm [Unknown]

NARRATIVE: CASE EVENT DATE: 20170914
